FAERS Safety Report 8005129-7 (Version None)
Quarter: 2011Q4

REPORT INFORMATION
  Report Type: 
  Country: None (occurrence: None)
  Receive Date: 20111223
  Receipt Date: 20111214
  Transmission Date: 20120403
  Serious: Yes (Other)
  Sender: FDA-Public Use
  Company Number: PHHY2011JP109474

PATIENT
  Age: 18 Year
  Sex: Female

DRUGS (1)
  1. CARBAMAZEPINE [Suspect]

REACTIONS (5)
  - ENCEPHALITIS [None]
  - BONE MARROW FAILURE [None]
  - BACTERAEMIA [None]
  - TERATOMA [None]
  - FUNGAEMIA [None]
